FAERS Safety Report 4866089-0 (Version None)
Quarter: 2005Q4

REPORT INFORMATION
  Report Type: 
  Country: None (occurrence: None)
  Receive Date: 20051221
  Receipt Date: 20051206
  Transmission Date: 20060501
  Serious: Yes (Death)
  Sender: FDA-Public Use
  Company Number: 2005BI011456

PATIENT
  Age: 51 Year
  Sex: Female
  Weight: 56 kg

DRUGS (5)
  1. NATALIZUMAB [Suspect]
     Indication: MULTIPLE SCLEROSIS
     Dosage: 300 MG; QM; IM
     Route: 030
     Dates: start: 20041208, end: 20041208
  2. BACLOFEN [Concomitant]
  3. CELEXA [Concomitant]
  4. AMITRIPTYLINE [Concomitant]
  5. DITROPAN [Concomitant]

REACTIONS (14)
  - APNOEA [None]
  - ARRHYTHMIA [None]
  - BLOOD PRESSURE IMMEASURABLE [None]
  - BODY TEMPERATURE INCREASED [None]
  - CARDIAC ARREST [None]
  - CONVULSION [None]
  - CYANOSIS [None]
  - DRUG LEVEL INCREASED [None]
  - GLASGOW COMA SCALE ABNORMAL [None]
  - PULSE ABSENT [None]
  - PUPIL FIXED [None]
  - RESPIRATORY ARREST [None]
  - SKIN WARM [None]
  - TONGUE HAEMORRHAGE [None]
